FAERS Safety Report 9404316 (Version 1)
Quarter: 2013Q3

REPORT INFORMATION
  Report Type: Spontaneous
  Country: CH (occurrence: CH)
  Receive Date: 20130717
  Receipt Date: 20130717
  Transmission Date: 20140515
  Serious: Yes (Hospitalization, Other)
  Sender: FDA-Public Use
  Company Number: CH-009507513-1307CHE004786

PATIENT
  Age: 68 Year
  Sex: Male

DRUGS (7)
  1. REBETOL [Suspect]
     Indication: HEPATITIS C
     Dosage: 2 CAPSULES IN THE MORNING AND ONE CAPSULE IN THE NIGHT
     Route: 048
     Dates: start: 20130610, end: 20130622
  2. COPEGUS [Suspect]
     Indication: HEPATITIS C
     Dosage: 3 CAPSULES IN THE MORNING AND 2 CAPSULES IN THE NIGHT
     Route: 048
     Dates: start: 20130315, end: 20130610
  3. PEGASYS [Suspect]
     Indication: HEPATITIS C
     Dosage: VIAL
     Route: 058
     Dates: start: 20130315
  4. TELAPREVIR [Suspect]
     Indication: HEPATITIS C
     Dosage: UNK
     Route: 048
     Dates: start: 20130315, end: 20130607
  5. TELAPREVIR [Suspect]
     Dosage: UNK
     Route: 048
     Dates: start: 20130315, end: 20130607
  6. PANTOZOL [Concomitant]
     Indication: HYPERTENSION
     Dosage: UNK, ONCE DAILY
     Route: 048
  7. KAMILLOSAN [Concomitant]
     Dosage: 4 DF, QD

REACTIONS (6)
  - Pancytopenia [Recovering/Resolving]
  - Haemolysis [Recovering/Resolving]
  - Asthenia [Recovering/Resolving]
  - Pallor [Recovering/Resolving]
  - Malaise [Recovering/Resolving]
  - Pyrexia [Recovering/Resolving]
